FAERS Safety Report 23831830 (Version 1)
Quarter: 2024Q2

REPORT INFORMATION
  Report Type: Spontaneous
  Country: US (occurrence: US)
  Receive Date: 20240508
  Receipt Date: 20240508
  Transmission Date: 20240716
  Serious: No
  Sender: FDA-Public Use
  Company Number: US-BRISTOL-MYERS SQUIBB COMPANY-2024-071519

PATIENT
  Age: 56 Year
  Sex: Female
  Weight: 73.03 kg

DRUGS (1)
  1. ONUREG [Suspect]
     Active Substance: AZACITIDINE
     Indication: Acute myeloid leukaemia
     Dosage: FREQUENCY:  DAILY ON DAYS 1-14 OF A 28 DAY CYCLE
     Route: 048

REACTIONS (1)
  - Full blood count decreased [Unknown]
